FAERS Safety Report 5573491-0 (Version None)
Quarter: 2007Q4

REPORT INFORMATION
  Report Type: 
  Country: None (occurrence: None)
  Receive Date: 20071220
  Receipt Date: 20071220
  Transmission Date: 20080405
  Serious: Yes (Hospitalization)
  Sender: FDA-Public Use
  Company Number: None

PATIENT
  Age: 73 Year
  Sex: Male

DRUGS (2)
  1. INSULIN ASPART [Suspect]
     Indication: TYPE 2 DIABETES MELLITUS
     Dates: start: 20070816, end: 20071021
  2. NPH ILETIN II [Suspect]
     Indication: TYPE 2 DIABETES MELLITUS
     Dates: start: 20070816, end: 20071021

REACTIONS (1)
  - HYPOGLYCAEMIA [None]
